FAERS Safety Report 13398611 (Version 2)
Quarter: 2017Q2

REPORT INFORMATION
  Report Type: Report from Study
  Country: US (occurrence: US)
  Receive Date: 20170403
  Receipt Date: 20170503
  Transmission Date: 20170830
  Serious: Yes (Other)
  Sender: FDA-Public Use
  Company Number: US-GILEAD-2017-0265012

PATIENT
  Age: 50 Year
  Sex: Male

DRUGS (2)
  1. IDELALISIB [Suspect]
     Active Substance: IDELALISIB
     Indication: CHRONIC LYMPHOCYTIC LEUKAEMIA
     Dosage: 150 MG, BID
     Route: 048
     Dates: start: 20170204
  2. IDELALISIB [Suspect]
     Active Substance: IDELALISIB
     Dosage: 300 MG, UNK
     Route: 048
     Dates: start: 20170305

REACTIONS (8)
  - Chest discomfort [Unknown]
  - Diabetes mellitus [Unknown]
  - Dyspnoea [Unknown]
  - Urinary hesitation [Unknown]
  - Loss of libido [Unknown]
  - Fatigue [Unknown]
  - Diarrhoea [Unknown]
  - Rhinorrhoea [Unknown]
